FAERS Safety Report 4645843-4 (Version None)
Quarter: 2005Q2

REPORT INFORMATION
  Report Type: 
  Country: None (occurrence: None)
  Receive Date: 20050422
  Receipt Date: 20050422
  Transmission Date: 20051028
  Serious: No
  Sender: FDA-Public Use
  Company Number: None

PATIENT
  Age: 63 Year
  Sex: Male
  Weight: 95 kg

DRUGS (12)
  1. WARFARIN SODIUM [Suspect]
     Indication: ATRIAL FIBRILLATION
     Dosage: 7.5 MG ; 5 MG ; 7.5 MG 7.5 MG    HOME MED
     Dates: start: 20050103
  2. WARFARIN SODIUM [Suspect]
     Indication: MITRAL VALVE REPLACEMENT
     Dosage: 7.5 MG ; 5 MG ; 7.5 MG 7.5 MG    HOME MED
     Dates: start: 20050103
  3. WARFARIN SODIUM [Suspect]
     Indication: TRICUSPID VALVE REPLACEMENT
     Dosage: 7.5 MG ; 5 MG ; 7.5 MG 7.5 MG    HOME MED
     Dates: start: 20050103
  4. WARFARIN SODIUM [Suspect]
     Indication: ATRIAL FIBRILLATION
     Dosage: 7.5 MG ; 5 MG ; 7.5 MG 7.5 MG    HOME MED
     Dates: start: 20050201
  5. WARFARIN SODIUM [Suspect]
     Indication: MITRAL VALVE REPLACEMENT
     Dosage: 7.5 MG ; 5 MG ; 7.5 MG 7.5 MG    HOME MED
     Dates: start: 20050201
  6. WARFARIN SODIUM [Suspect]
     Indication: TRICUSPID VALVE REPLACEMENT
     Dosage: 7.5 MG ; 5 MG ; 7.5 MG 7.5 MG    HOME MED
     Dates: start: 20050201
  7. WARFARIN SODIUM [Suspect]
     Indication: ATRIAL FIBRILLATION
     Dosage: 7.5 MG ; 5 MG ; 7.5 MG 7.5 MG    HOME MED
     Dates: start: 20050202
  8. WARFARIN SODIUM [Suspect]
     Indication: MITRAL VALVE REPLACEMENT
     Dosage: 7.5 MG ; 5 MG ; 7.5 MG 7.5 MG    HOME MED
     Dates: start: 20050202
  9. WARFARIN SODIUM [Suspect]
     Indication: TRICUSPID VALVE REPLACEMENT
     Dosage: 7.5 MG ; 5 MG ; 7.5 MG 7.5 MG    HOME MED
     Dates: start: 20050202
  10. WARFARIN SODIUM [Suspect]
     Indication: ATRIAL FIBRILLATION
     Dosage: 7.5 MG ; 5 MG ; 7.5 MG 7.5 MG    HOME MED
     Dates: start: 20050203
  11. WARFARIN SODIUM [Suspect]
     Indication: MITRAL VALVE REPLACEMENT
     Dosage: 7.5 MG ; 5 MG ; 7.5 MG 7.5 MG    HOME MED
     Dates: start: 20050203
  12. WARFARIN SODIUM [Suspect]
     Indication: TRICUSPID VALVE REPLACEMENT
     Dosage: 7.5 MG ; 5 MG ; 7.5 MG 7.5 MG    HOME MED
     Dates: start: 20050203

REACTIONS (2)
  - GASTROINTESTINAL HAEMORRHAGE [None]
  - HAEMATOCRIT DECREASED [None]
